FAERS Safety Report 22329743 (Version 5)
Quarter: 2023Q2

REPORT INFORMATION
  Report Type: Report from Study
  Country: US (occurrence: US)
  Receive Date: 20230517
  Receipt Date: 20230617
  Transmission Date: 20230722
  Serious: Yes (Death, Hospitalization, Other)
  Sender: FDA-Public Use
  Company Number: US-AUROBINDO-AUR-APL-2023-036433

PATIENT
  Age: 66 Year
  Sex: Female
  Weight: 45.1 kg

DRUGS (2)
  1. BELINOSTAT [Suspect]
     Active Substance: BELINOSTAT
     Indication: Adenocarcinoma pancreas
     Dosage: 1000 MG/M2 (D1-5, 21 DAY CYCLE LAST DOSE BEFORE EVENT 21/APR/2023)
     Route: 042
     Dates: start: 20230417, end: 20230508
  2. TALAZOPARIB [Suspect]
     Active Substance: TALAZOPARIB
     Indication: Adenocarcinoma pancreas
     Dosage: 1 MILLIGRAM, DAILY (CONTINUED TO HOLD LAST DOSE BEFORE EVENT 25/APR/2023)
     Route: 048
     Dates: start: 20230417, end: 20230508

REACTIONS (2)
  - Hepatic failure [Fatal]
  - Failure to thrive [Recovered/Resolved with Sequelae]

NARRATIVE: CASE EVENT DATE: 20230502
